FAERS Safety Report 4971167-1 (Version None)
Quarter: 2006Q1

REPORT INFORMATION
  Report Type: 
  Country: None (occurrence: None)
  Receive Date: 20060222
  Receipt Date: 20060124
  Transmission Date: 20060701
  Serious: Yes (Other)
  Sender: FDA-Public Use
  Company Number: HQWYE510226JAN06

PATIENT
  Age: 58 Year
  Sex: Female
  Weight: 69.46 kg

DRUGS (1)
  1. PROTONIX [Suspect]
     Indication: DYSPEPSIA
     Dosage: 40 MG 1X PER 1 DAY, ORAL
     Route: 048
     Dates: start: 20050801, end: 20060112

REACTIONS (6)
  - ALANINE AMINOTRANSFERASE INCREASED [None]
  - ASPARTATE AMINOTRANSFERASE INCREASED [None]
  - BLOOD GLUCOSE INCREASED [None]
  - DRUG INEFFECTIVE [None]
  - PLATELET COUNT DECREASED [None]
  - THYROID FUNCTION TEST ABNORMAL [None]
